FAERS Safety Report 8413210-3 (Version None)
Quarter: 2012Q2

REPORT INFORMATION
  Report Type: 
  Country: None (occurrence: None)
  Receive Date: 20120605
  Receipt Date: 20120529
  Transmission Date: 20120825
  Serious: No
  Sender: FDA-Public Use
  Company Number: US-PFIZER INC-2012129680

PATIENT
  Sex: Female
  Weight: 68.027 kg

DRUGS (2)
  1. NATURE MADE [Concomitant]
     Dosage: UNK
  2. ALTACE [Suspect]
     Indication: BLOOD PRESSURE INCREASED
     Dosage: 5 MG, ONCE DAILY
     Dates: start: 20060501

REACTIONS (2)
  - SERUM SEROTONIN DECREASED [None]
  - BLOOD IRON DECREASED [None]
